FAERS Safety Report 4970361-3 (Version None)
Quarter: 2006Q2

REPORT INFORMATION
  Report Type: 
  Country: None (occurrence: None)
  Receive Date: 20060412
  Receipt Date: 20060329
  Transmission Date: 20061013
  Serious: No
  Sender: FDA-Public Use
  Company Number: JP-AVENTIS-200611036JP

PATIENT

DRUGS (2)
  1. TAXOTERE [Suspect]
     Indication: RECURRENT CANCER
     Dosage: DOSE: 60 TO 90
     Route: 013
  2. CDDP [Suspect]
     Indication: RECURRENT CANCER
     Dosage: DOSE: 100 TO 150
     Route: 013

REACTIONS (4)
  - CEREBRAL INFARCTION [None]
  - CRANIAL NERVE PARALYSIS [None]
  - HAEMATOTOXICITY [None]
  - MUCOSAL INFLAMMATION [None]
